FAERS Safety Report 24809274 (Version 1)
Quarter: 2025Q1

REPORT INFORMATION
  Report Type: Spontaneous
  Country: CN (occurrence: CN)
  Receive Date: 20250106
  Receipt Date: 20250106
  Transmission Date: 20250409
  Serious: Yes (Hospitalization, Other)
  Sender: IPCA
  Company Number: CN-IPCA LABORATORIES LIMITED-IPC-2024-CN-003105

PATIENT

DRUGS (5)
  1. PROPRANOLOL [Suspect]
     Active Substance: PROPRANOLOL HYDROCHLORIDE
     Indication: Myocarditis
     Route: 048
  2. PROPRANOLOL [Suspect]
     Active Substance: PROPRANOLOL HYDROCHLORIDE
     Route: 048
  3. PROPRANOLOL [Suspect]
     Active Substance: PROPRANOLOL HYDROCHLORIDE
     Route: 048
  4. PROPRANOLOL [Suspect]
     Active Substance: PROPRANOLOL HYDROCHLORIDE
     Route: 048
  5. ISOPROTERENOL [Suspect]
     Active Substance: ISOPROTERENOL
     Indication: Myocarditis
     Route: 065

REACTIONS (13)
  - Ventricular tachycardia [Recovered/Resolved]
  - Mental impairment [Recovered/Resolved]
  - Long QT syndrome [Recovered/Resolved]
  - Arrhythmic storm [Recovered/Resolved]
  - Torsade de pointes [Recovered/Resolved]
  - Dyspnoea [Recovered/Resolved]
  - Cyanosis [Recovered/Resolved]
  - Atrioventricular block second degree [Recovered/Resolved]
  - Atrioventricular block first degree [Recovered/Resolved]
  - Bundle branch block left [Recovered/Resolved]
  - Bundle branch block right [Recovered/Resolved]
  - Condition aggravated [Recovered/Resolved]
  - Drug ineffective [Unknown]
